FAERS Safety Report 6818346-6 (Version None)
Quarter: 2010Q3

REPORT INFORMATION
  Report Type: 
  Country: None (occurrence: None)
  Receive Date: 20100706
  Receipt Date: 20080117
  Transmission Date: 20110219
  Serious: Yes (Hospitalization, Other)
  Sender: FDA-Public Use
  Company Number: US-PFIZER INC-2007101420

PATIENT
  Sex: Male

DRUGS (5)
  1. AZITHROMYCIN [Suspect]
     Indication: RESPIRATORY TRACT INFECTION
     Route: 048
     Dates: start: 20051201
  2. LAMICTAL [Suspect]
     Indication: BIPOLAR DISORDER
     Route: 048
     Dates: start: 20050501
  3. LITHIUM CARBONATE [Concomitant]
     Route: 048
  4. TOBRAMYCIN SULFATE [Concomitant]
     Dosage: 0.3%
     Route: 047
  5. FAMOTIDINE [Concomitant]
     Route: 048

REACTIONS (2)
  - STEVENS-JOHNSON SYNDROME [None]
  - TOXIC EPIDERMAL NECROLYSIS [None]
